FAERS Safety Report 5070146-6 (Version None)
Quarter: 2006Q3

REPORT INFORMATION
  Report Type: 
  Country: None (occurrence: None)
  Receive Date: 20060714
  Receipt Date: 20060407
  Transmission Date: 20061208
  Serious: No
  Sender: FDA-Public Use
  Company Number: 2006SP001603

PATIENT
  Age: 60 Year
  Sex: Female
  Weight: 57.6068 kg

DRUGS (6)
  1. LUNESTA [Suspect]
     Indication: INSOMNIA
     Dosage: SEE IMAGE
     Route: 048
     Dates: start: 20060101, end: 20060101
  2. LUNESTA [Suspect]
     Indication: INSOMNIA
     Dosage: SEE IMAGE
     Route: 048
     Dates: start: 20060201
  3. AMBIEN [Concomitant]
  4. NIASPA [Concomitant]
  5. PREMPRO [Concomitant]
  6. NAPROXEN SODIUM [Concomitant]

REACTIONS (1)
  - DRUG EFFECT DECREASED [None]
